FAERS Safety Report 7684386-0 (Version None)
Quarter: 2011Q3

REPORT INFORMATION
  Report Type: 
  Country: None (occurrence: None)
  Receive Date: 20110816
  Receipt Date: 20110809
  Transmission Date: 20111222
  Serious: Yes (Life-Threatening, Hospitalization)
  Sender: FDA-Public Use
  Company Number: IT-BIOGENIDEC-2011BI030433

PATIENT
  Age: 41 Year
  Sex: Female

DRUGS (2)
  1. METHYLTHIOPHENATE NOS [Concomitant]
     Dates: start: 20101012
  2. TYSABRI [Suspect]
     Indication: RELAPSING-REMITTING MULTIPLE SCLEROSIS
     Route: 042
     Dates: start: 20100615

REACTIONS (1)
  - INTENTIONAL SELF-INJURY [None]
